FAERS Safety Report 23531324 (Version 1)
Quarter: 2024Q1

REPORT INFORMATION
  Report Type: Spontaneous
  Country: US (occurrence: US)
  Receive Date: 20240216
  Receipt Date: 20240216
  Transmission Date: 20240410
  Serious: No
  Sender: FDA-Public Use
  Company Number: US-PHARMAAND GMBH-2023PHR00229

PATIENT
  Age: 55 Year
  Sex: Female

DRUGS (2)
  1. RUBRACA [Suspect]
     Active Substance: RUCAPARIB CAMSYLATE
     Indication: Product used for unknown indication
     Dosage: 600 MG (TWO 300 MG) TWICE DAILY
     Dates: start: 20230425
  2. RUBRACA [Suspect]
     Active Substance: RUCAPARIB CAMSYLATE
     Dosage: 300 MG, 1X/DAY

REACTIONS (6)
  - Peripheral swelling [Recovering/Resolving]
  - Asthenopia [Recovering/Resolving]
  - Nausea [Recovered/Resolved]
  - Pruritus [Unknown]
  - Dry skin [Unknown]
  - Fatigue [Unknown]

NARRATIVE: CASE EVENT DATE: 20230501
